FAERS Safety Report 17120041 (Version 3)
Quarter: 2020Q1

REPORT INFORMATION
  Report Type: Report from Study
  Country: MX (occurrence: MX)
  Receive Date: 20191206
  Receipt Date: 20200122
  Transmission Date: 20200409
  Serious: Yes (Other)
  Sender: FDA-Public Use
  Company Number: NVSC2019MX060576

PATIENT
  Age: 56 Year
  Sex: Female
  Weight: 64 kg

DRUGS (1)
  1. EXFORGE [Suspect]
     Active Substance: AMLODIPINE BESYLATE\VALSARTAN
     Indication: HYPERTENSION
     Dosage: 0.5 DF, QD (160/5MG) (FOR TWO MONTHS AND ONE MORE MONTH)
     Route: 048
     Dates: start: 201906, end: 201912

REACTIONS (6)
  - Wrong technique in product usage process [Unknown]
  - Drug intolerance [Unknown]
  - Product prescribing error [Unknown]
  - Choking sensation [Recovered/Resolved]
  - Hypertension [Recovered/Resolved]
  - Headache [Recovered/Resolved]

NARRATIVE: CASE EVENT DATE: 201906
